FAERS Safety Report 8818036 (Version 1)
Quarter: 2012Q4

REPORT INFORMATION
  Report Type: 
  Country: US (occurrence: US)
  Receive Date: 20121001
  Receipt Date: 20121001
  Transmission Date: 20130627
  Serious: Yes (Hospitalization)
  Sender: FDA-Public Use
  Company Number: US-PFIZER INC-2012241392

PATIENT
  Sex: Female

DRUGS (2)
  1. CALAN [Suspect]
  2. XALATAN [Suspect]

REACTIONS (1)
  - Pleural effusion [Unknown]
